FAERS Safety Report 9194984 (Version 1)
Quarter: 2013Q1

REPORT INFORMATION
  Report Type: Spontaneous
  Country: US (occurrence: US)
  Receive Date: 20130328
  Receipt Date: 20130328
  Transmission Date: 20140127
  Serious: No
  Sender: FDA-Public Use
  Company Number: US-ALLERGAN-1214580US

PATIENT
  Age: 67 Year
  Sex: Female

DRUGS (5)
  1. LATISSE 0.03% [Suspect]
     Indication: GROWTH OF EYELASHES
     Dosage: 2 GTT, QHS
     Route: 061
     Dates: start: 20121010
  2. LATISSE 0.03% [Suspect]
     Dosage: UNK
     Dates: start: 201204
  3. LATISSE 0.03% [Suspect]
     Dosage: UNK
     Dates: start: 2010
  4. VAGIFEM [Concomitant]
     Indication: HORMONE REPLACEMENT THERAPY
     Dosage: UNK UNK, BI-WEEKLY
     Route: 067
  5. DIVIGEL [Concomitant]
     Indication: HORMONE REPLACEMENT THERAPY
     Dosage: UNK UNK, QD
     Route: 061

REACTIONS (8)
  - Acne [Unknown]
  - Acne [Unknown]
  - Acne [Recovered/Resolved]
  - Erythema of eyelid [Recovered/Resolved]
  - Erythema of eyelid [Unknown]
  - Erythema of eyelid [Unknown]
  - Erythema of eyelid [Recovered/Resolved]
  - Erythema of eyelid [Recovered/Resolved]
